FAERS Safety Report 10865551 (Version 1)
Quarter: 2015Q1

REPORT INFORMATION
  Report Type: Report from Study
  Country: US (occurrence: US)
  Receive Date: 20150224
  Receipt Date: 20150224
  Transmission Date: 20150721
  Serious: No
  Sender: FDA-Public Use
  Company Number: US-MYLANLABS-2014S1013350

PATIENT
  Sex: Male
  Weight: 95.26 kg

DRUGS (8)
  1. METFORMIN [Concomitant]
     Active Substance: METFORMIN HYDROCHLORIDE
     Dosage: UNK
  2. ZETIA [Concomitant]
     Active Substance: EZETIMIBE
     Dosage: UNK
  3. AMNESTEEM [Suspect]
     Active Substance: ISOTRETINOIN
     Indication: LICHEN PLANUS
  4. CLARAVIS [Suspect]
     Active Substance: ISOTRETINOIN
     Indication: LICHEN PLANUS
     Dosage: 40 MG,QD
     Route: 048
     Dates: start: 20140304, end: 20140505
  5. AMNESTEEM [Suspect]
     Active Substance: ISOTRETINOIN
     Dosage: 20 MG,BID
     Route: 048
     Dates: start: 20140505, end: 20140603
  6. AMNESTEEM [Suspect]
     Active Substance: ISOTRETINOIN
     Indication: OFF LABEL USE
  7. GLIPIZIDE. [Concomitant]
     Active Substance: GLIPIZIDE
     Dosage: UNK
  8. LIPITOR [Concomitant]
     Active Substance: ATORVASTATIN CALCIUM
     Dosage: UNK

REACTIONS (3)
  - Myalgia [Not Recovered/Not Resolved]
  - Dry skin [Recovered/Resolved]
  - Chapped lips [Recovered/Resolved]

NARRATIVE: CASE EVENT DATE: 2014
